FAERS Safety Report 5307285-8 (Version None)
Quarter: 2007Q1

REPORT INFORMATION
  Report Type: 
  Country: None (occurrence: None)
  Receive Date: 20070201
  Receipt Date: 20061205
  Transmission Date: 20070707
  Serious: No
  Sender: FDA-Public Use
  Company Number: 2006PV026460

PATIENT
  Age: 58 Year
  Sex: Male
  Weight: 83.4619 kg

DRUGS (3)
  1. BYETTA [Suspect]
     Indication: DIABETES MELLITUS NON-INSULIN-DEPENDENT
     Dosage: 10 MCG;BID;SC
     Route: 058
     Dates: start: 20050101
  2. METFORMIN HCL [Concomitant]
  3. ACTOS [Concomitant]

REACTIONS (1)
  - BLOOD GLUCOSE ABNORMAL [None]
